FAERS Safety Report 6292409-9 (Version None)
Quarter: 2009Q3

REPORT INFORMATION
  Report Type: 
  Country: None (occurrence: None)
  Receive Date: 20090731
  Receipt Date: 20090730
  Transmission Date: 20100115
  Serious: Yes (Death, Hospitalization, Other)
  Sender: FDA-Public Use
  Company Number: PHHY2009GB21939

PATIENT
  Sex: Female

DRUGS (5)
  1. SANDOSTATIN LAR [Suspect]
     Indication: CARCINOID SYNDROME
     Dosage: 1 DOSE
     Route: 030
     Dates: start: 20090401
  2. SANDOSTATIN LAR [Suspect]
     Indication: DIARRHOEA
  3. ADCAL [Concomitant]
     Dosage: 2 TABLET DAILY
     Route: 048
  4. LEVOTHYROXINE SODIUM [Concomitant]
     Dosage: 75 MG/DAY
     Route: 048
  5. OMEPRAZOLE [Concomitant]
     Dosage: 20 MG/DAY
     Route: 048

REACTIONS (5)
  - DIARRHOEA [None]
  - HYPERGLYCAEMIA [None]
  - HYPEROSMOLAR STATE [None]
  - OBSTRUCTION GASTRIC [None]
  - RENAL FAILURE ACUTE [None]
